FAERS Safety Report 6930985-0 (Version None)
Quarter: 2010Q3

REPORT INFORMATION
  Report Type: 
  Country: None (occurrence: None)
  Receive Date: 20100817
  Receipt Date: 20100817
  Transmission Date: 20110219
  Serious: Yes (Hospitalization)
  Sender: FDA-Public Use
  Company Number: None

PATIENT
  Sex: Female
  Weight: 80.5 kg

DRUGS (12)
  1. CARBOPLATIN [Suspect]
     Indication: SMALL CELL LUNG CANCER STAGE UNSPECIFIED
     Dosage: CARBOPLATIN 720MG DAYS 1 IV
     Route: 042
     Dates: start: 20100802
  2. ETOPOSIDE [Suspect]
     Dosage: ETOPOSIDE 191MG DAYS 1, 2, AND 3 IV
     Route: 042
     Dates: start: 20100802
  3. ETOPOSIDE [Suspect]
     Dosage: ETOPOSIDE 191MG DAYS 1, 2, AND 3 IV
     Route: 042
     Dates: start: 20100803
  4. ETOPOSIDE [Suspect]
     Dosage: ETOPOSIDE 191MG DAYS 1, 2, AND 3 IV
     Route: 042
     Dates: start: 20100804
  5. COMPAZINE [Concomitant]
  6. ATIVAN [Concomitant]
  7. PERCOCET [Concomitant]
  8. DARVOCET-N 100 [Concomitant]
  9. ALLEGRA [Concomitant]
  10. LISINOPRIL [Concomitant]
  11. TUSSINEX [Concomitant]
  12. ALBUTEROL [Concomitant]

REACTIONS (2)
  - FEBRILE NEUTROPENIA [None]
  - FLANK PAIN [None]
